FAERS Safety Report 16894593 (Version 2)
Quarter: 2019Q4

REPORT INFORMATION
  Report Type: Spontaneous
  Country: US (occurrence: US)
  Receive Date: 20191008
  Receipt Date: 20191011
  Transmission Date: 20200122
  Serious: No
  Sender: FDA-Public Use
  Company Number: US-PFIZER INC-2019262465

PATIENT
  Age: 66 Year
  Sex: Female
  Weight: 99 kg

DRUGS (1)
  1. LYRICA [Suspect]
     Active Substance: PREGABALIN
     Dosage: 75 MG, 1X/DAY (AT BED TIME)
     Route: 048
     Dates: start: 20190524

REACTIONS (2)
  - Nervousness [Unknown]
  - Psychomotor hyperactivity [Unknown]
